FAERS Safety Report 5011297-1 (Version None)
Quarter: 2006Q2

REPORT INFORMATION
  Report Type: 
  Country: None (occurrence: None)
  Receive Date: 20060404
  Receipt Date: 20060306
  Transmission Date: 20061013
  Serious: No
  Sender: FDA-Public Use
  Company Number: US200601000622

PATIENT
  Sex: Female

DRUGS (5)
  1. CYMBALTA [Suspect]
     Indication: PAIN
     Dosage: 30 MG, DAILY (1/D)
     Dates: start: 20051127, end: 20051229
  2. MAXZIDE [Concomitant]
  3. ASA (ASPIRIN (ACETYLSALICYLIC ACID) UNKNOWN FORMULATION) [Concomitant]
  4. MOBIC [Concomitant]
  5. ANTIHYPERTENSIVE AGENT (ANTIHYPERTENSIVE AGENT UNKNOWN FORMULATION) [Concomitant]

REACTIONS (8)
  - CONSTIPATION [None]
  - FEELING ABNORMAL [None]
  - HEADACHE [None]
  - MICTURITION DISORDER [None]
  - MIDDLE INSOMNIA [None]
  - NAUSEA [None]
  - SOMNOLENCE [None]
  - VISION BLURRED [None]
